FAERS Safety Report 9256370 (Version 1)
Quarter: 2013Q2

REPORT INFORMATION
  Report Type: Spontaneous
  Country: US (occurrence: US)
  Receive Date: 20130425
  Receipt Date: 20130425
  Transmission Date: 20140414
  Serious: Yes (Death, Other)
  Sender: FDA-Public Use
  Company Number: US-BAXTER-2013BAX013838

PATIENT
  Age: 59 Year
  Sex: Female

DRUGS (1)
  1. DIANEAL PD2 [Suspect]
     Indication: PERITONEAL DIALYSIS
     Route: 033
     Dates: start: 20120830, end: 20130228

REACTIONS (5)
  - Death [Fatal]
  - Protein total decreased [Unknown]
  - Anaemia [Unknown]
  - Extremity necrosis [Unknown]
  - Hypophagia [Unknown]
